FAERS Safety Report 5729394-1 (Version None)
Quarter: 2008Q2

REPORT INFORMATION
  Report Type: 
  Country: None (occurrence: None)
  Receive Date: 20080501
  Receipt Date: 20080422
  Transmission Date: 20081010
  Serious: Yes (Death)
  Sender: FDA-Public Use
  Company Number: 1-16053310 MED 08079

PATIENT
  Age: 73 Year
  Sex: Female
  Weight: 78.4723 kg

DRUGS (8)
  1. BACTRIM [Suspect]
     Dosage: ORAL
     Route: 048
     Dates: end: 20080223
  2. LISINOPRIL AND HYDROCHLOROTHIAZIDE [Concomitant]
  3. GEMFIBROZIL [Concomitant]
  4. ALLEGRA [Concomitant]
  5. FLONASE [Concomitant]
  6. TRAMADOL HCL [Concomitant]
  7. CALCIUM [Concomitant]
  8. UNSPECIFIED MULTIVITAMIN [Concomitant]

REACTIONS (10)
  - ARTHRALGIA [None]
  - DISSEMINATED INTRAVASCULAR COAGULATION [None]
  - FALL [None]
  - FEMUR FRACTURE [None]
  - HYPOTENSION [None]
  - MALIGNANT NEOPLASM PROGRESSION [None]
  - METABOLIC ACIDOSIS [None]
  - PNEUMONIA [None]
  - RENAL CELL CARCINOMA [None]
  - RENAL FAILURE ACUTE [None]
